FAERS Safety Report 8803932 (Version 1)
Quarter: 2012Q4

REPORT INFORMATION
  Report Type: 
  Country: US (occurrence: US)
  Receive Date: 20120924
  Receipt Date: 20120924
  Transmission Date: 20130627
  Serious: No
  Sender: FDA-Public Use
  Company Number: US-PFIZER INC-2012235020

PATIENT
  Age: 51 Year
  Sex: Female
  Weight: 68.03 kg

DRUGS (4)
  1. CHANTIX [Suspect]
     Indication: SMOKING CESSATION THERAPY
     Dosage: 0.5 mg, 1x/day
     Route: 048
  2. GABAPENTIN [Concomitant]
     Dosage: 400 mg, one in morning and two at night
  3. CYCLOBENZAPRINE [Concomitant]
     Dosage: 10 mg, 1x/day
  4. TRAMADOL [Concomitant]
     Dosage: 50 mg, 2x/day

REACTIONS (1)
  - Blood cholesterol increased [Unknown]
